FAERS Safety Report 19738899 (Version 2)
Quarter: 2021Q4

REPORT INFORMATION
  Report Type: Report from Study
  Country: US (occurrence: US)
  Receive Date: 20210823
  Receipt Date: 20211129
  Transmission Date: 20220303
  Serious: Yes (Life-Threatening, Hospitalization, Other)
  Sender: FDA-Public Use
  Company Number: US-BRISTOL-MYERS SQUIBB COMPANY-BMS-2021-082138

PATIENT
  Age: 64 Year
  Sex: Male
  Weight: 126.08 kg

DRUGS (5)
  1. TRIAMCINOLONE ACETONIDE [Suspect]
     Active Substance: TRIAMCINOLONE ACETONIDE
     Indication: Product used for unknown indication
     Route: 065
  2. HUMIRA [Suspect]
     Active Substance: ADALIMUMAB
     Indication: Rheumatoid arthritis
     Dosage: 40 MILLIGRAM [CITRATE FREE (4- 2)]
     Route: 058
     Dates: start: 2014
  3. HUMIRA [Suspect]
     Active Substance: ADALIMUMAB
     Indication: Psoriatic arthropathy
  4. METFORMIN [Concomitant]
     Active Substance: METFORMIN HYDROCHLORIDE
     Indication: Product used for unknown indication
     Route: 065
  5. GLYBURIDE [Concomitant]
     Active Substance: GLYBURIDE
     Indication: Product used for unknown indication
     Route: 065

REACTIONS (32)
  - COVID-19 [Recovering/Resolving]
  - Lung infiltration [Recovered/Resolved]
  - Pneumonia [Recovering/Resolving]
  - Psoriatic arthropathy [Recovering/Resolving]
  - Neuropathy peripheral [Unknown]
  - Gait disturbance [Unknown]
  - Antibody test abnormal [Unknown]
  - Memory impairment [Not Recovered/Not Resolved]
  - Weight decreased [Not Recovered/Not Resolved]
  - Limb injury [Unknown]
  - Disturbance in attention [Not Recovered/Not Resolved]
  - Dizziness [Recovering/Resolving]
  - Oxygen saturation decreased [Recovering/Resolving]
  - Liver disorder [Unknown]
  - Renal disorder [Unknown]
  - Balance disorder [Not Recovered/Not Resolved]
  - Bursitis [Unknown]
  - Osteoarthritis [Not Recovered/Not Resolved]
  - Irritable bowel syndrome [Not Recovered/Not Resolved]
  - Insomnia [Recovered/Resolved]
  - Contusion [Unknown]
  - Fall [Recovered/Resolved]
  - Arthropathy [Unknown]
  - Peripheral swelling [Unknown]
  - Injection site bruising [Recovered/Resolved]
  - Injection site pain [Recovered/Resolved]
  - Dehydration [Recovering/Resolving]
  - Injection site erythema [Recovered/Resolved]
  - Pleural effusion [Unknown]
  - Pain [Unknown]
  - Sciatica [Unknown]
  - Glycosylated haemoglobin decreased [Recovered/Resolved]

NARRATIVE: CASE EVENT DATE: 20200101
